FAERS Safety Report 5723650-9 (Version None)
Quarter: 2008Q2

REPORT INFORMATION
  Report Type: 
  Country: None (occurrence: None)
  Receive Date: 20080430
  Receipt Date: 20080418
  Transmission Date: 20081010
  Serious: Yes (Hospitalization)
  Sender: FDA-Public Use
  Company Number: JP-ROCHE-559927

PATIENT
  Sex: Female

DRUGS (11)
  1. PEGASYS [Suspect]
     Dosage: DOSE BLINDED
     Route: 058
     Dates: start: 20080408, end: 20080421
  2. RIBAVIRIN [Suspect]
     Dosage: FREQUENCY REPORTED AS DAILY
     Route: 048
     Dates: start: 20080408, end: 20080417
  3. GLYCYRON [Concomitant]
  4. GLYCYRON [Concomitant]
  5. GLYCYRON [Concomitant]
  6. BENIDIPINE HYDROCHLORIDE [Concomitant]
  7. NIFEDIPINE [Concomitant]
     Dates: start: 20080404
  8. CLOTIAZEPAM [Concomitant]
  9. DILAZEP DIHYDROCHLORIDE [Concomitant]
  10. FERROUS CITRATE [Concomitant]
  11. MAGNESIUM OXIDE [Concomitant]
     Dates: start: 20080408

REACTIONS (1)
  - HAEMATEMESIS [None]
